FAERS Safety Report 8599885 (Version 3)
Quarter: 2012Q4

REPORT INFORMATION
  Report Type: 
  Country: US (occurrence: US)
  Receive Date: 20120605
  Receipt Date: 20120928
  Transmission Date: 20130627
  Serious: Yes (Other)
  Sender: FDA-Public Use
  Company Number: US-JNJFOC-20120600840

PATIENT
  Age: 42 None
  Sex: Female
  Weight: 77.57 kg

DRUGS (13)
  1. RISPERIDONE [Suspect]
     Indication: AFFECTIVE DISORDER
     Dosage: 3mg in morning 3mg in afternoon and 3mg at night
     Route: 048
     Dates: start: 1994, end: 2006
  2. RISPERIDONE [Suspect]
     Indication: AFFECTIVE DISORDER
     Dosage: 3mg in morning,1mg in afternoon,3mg at night
     Route: 048
  3. RISPERIDONE [Suspect]
     Indication: AFFECTIVE DISORDER
     Route: 048
     Dates: start: 2007
  4. RISPERIDONE [Suspect]
     Indication: BIPOLAR DISORDER
     Route: 048
     Dates: start: 2007
  5. RISPERIDONE [Suspect]
     Indication: BIPOLAR DISORDER
     Dosage: 3mg in morning,1mg in afternoon,3mg at night
     Route: 048
  6. RISPERIDONE [Suspect]
     Indication: BIPOLAR DISORDER
     Dosage: 3mg in morning 3mg in afternoon and 3mg at night
     Route: 048
     Dates: start: 1994, end: 2006
  7. RISPERIDONE [Suspect]
     Indication: SCHIZOPHRENIA
     Dosage: 3mg in morning,1mg in afternoon,3mg at night
     Route: 048
  8. RISPERIDONE [Suspect]
     Indication: SCHIZOPHRENIA
     Route: 048
     Dates: start: 2007
  9. RISPERIDONE [Suspect]
     Indication: SCHIZOPHRENIA
     Dosage: 3mg in morning 3mg in afternoon and 3mg at night
     Route: 048
     Dates: start: 1994, end: 2006
  10. RISPERIDONE [Suspect]
     Indication: AFFECTIVE DISORDER
     Route: 048
     Dates: start: 2006, end: 2007
  11. RISPERIDONE [Suspect]
     Indication: BIPOLAR DISORDER
     Route: 048
     Dates: start: 2006, end: 2007
  12. RISPERIDONE [Suspect]
     Indication: SCHIZOPHRENIA
     Route: 048
     Dates: start: 2006, end: 2007
  13. INVEGA SUSTENNA [Suspect]
     Indication: PRODUCT USED FOR UNKNOWN INDICATION
     Route: 030

REACTIONS (6)
  - Sexual dysfunction [Not Recovered/Not Resolved]
  - Contusion [Not Recovered/Not Resolved]
  - Drug dose omission [Recovered/Resolved]
  - Dysphagia [Recovered/Resolved]
  - Inappropriate schedule of drug administration [Recovered/Resolved]
  - Overdose [Recovered/Resolved]
